FAERS Safety Report 12113477 (Version 1)
Quarter: 2016Q1

REPORT INFORMATION
  Report Type: Spontaneous
  Country: US (occurrence: US)
  Receive Date: 20160225
  Receipt Date: 20160225
  Transmission Date: 20160526
  Serious: No
  Sender: FDA-Public Use
  Company Number: US-BIOGEN-2016BI00172326

PATIENT

DRUGS (1)
  1. TECFIDERA [Suspect]
     Active Substance: DIMETHYL FUMARATE
     Indication: MULTIPLE SCLEROSIS
     Route: 048

REACTIONS (6)
  - Intentional product misuse [Unknown]
  - Abdominal distension [Unknown]
  - Nausea [Unknown]
  - Abdominal rigidity [Unknown]
  - Gastrointestinal disorder [Unknown]
  - Diarrhoea [Unknown]
